FAERS Safety Report 19495903 (Version 1)
Quarter: 2021Q3

REPORT INFORMATION
  Report Type: Report from Study
  Country: US (occurrence: US)
  Receive Date: 20210706
  Receipt Date: 20210706
  Transmission Date: 20211014
  Serious: Yes (Other)
  Sender: FDA-Public Use
  Company Number: US-JNJFOC-20210705051

PATIENT

DRUGS (3)
  1. INVEGA SUSTENNA [Suspect]
     Active Substance: PALIPERIDONE PALMITATE
  2. INVEGA SUSTENNA [Suspect]
     Active Substance: PALIPERIDONE PALMITATE
  3. INVEGA SUSTENNA [Suspect]
     Active Substance: PALIPERIDONE PALMITATE
     Indication: PRODUCT USED FOR UNKNOWN INDICATION
     Route: 030

REACTIONS (10)
  - Sexual dysfunction [Unknown]
  - Off label use [Unknown]
  - Hyperprolactinaemia [Unknown]
  - Nervous system disorder [Unknown]
  - Weight fluctuation [Unknown]
  - Headache [Unknown]
  - Skin reaction [Unknown]
  - Autonomic neuropathy [Unknown]
  - Mental disorder [Unknown]
  - Product use issue [Unknown]
